FAERS Safety Report 20648099 (Version 1)
Quarter: 2022Q1

REPORT INFORMATION
  Report Type: Spontaneous
  Country: US (occurrence: US)
  Receive Date: 20220329
  Receipt Date: 20220329
  Transmission Date: 20220423
  Serious: No
  Sender: FDA-Public Use
  Company Number: US-TAKEDA-2022TUS020113

PATIENT
  Sex: Female
  Weight: 73 kg

DRUGS (2)
  1. VYVANSE [Suspect]
     Active Substance: LISDEXAMFETAMINE DIMESYLATE
     Indication: Binge eating
     Dosage: 70 MILLIGRAM, QD
     Route: 065
     Dates: end: 202003
  2. ADDERALL XR [Suspect]
     Active Substance: AMPHETAMINE ASPARTATE\AMPHETAMINE SULFATE\DEXTROAMPHETAMINE SACCHARATE\DEXTROAMPHETAMINE SULFATE
     Indication: Binge eating
     Dosage: 40 MILLIGRAM, QD
     Route: 065
     Dates: end: 202201

REACTIONS (3)
  - Drug ineffective [Unknown]
  - Off label use [Unknown]
  - Inability to afford medication [Unknown]
